FAERS Safety Report 19751630 (Version 2)
Quarter: 2021Q3

REPORT INFORMATION
  Report Type: Report from Study
  Country: US (occurrence: US)
  Receive Date: 20210827
  Receipt Date: 20210929
  Transmission Date: 20211014
  Serious: Yes (Hospitalization, Other)
  Sender: FDA-Public Use
  Company Number: US-BRISTOL-MYERS SQUIBB COMPANY-BMS-2021-083643

PATIENT
  Age: 21 Year
  Sex: Male
  Weight: 74.5 kg

DRUGS (6)
  1. REMDESIVIR. [Suspect]
     Active Substance: REMDESIVIR
     Indication: PRODUCT USED FOR UNKNOWN INDICATION
     Dosage: UNK
     Route: 065
  2. CASIRIVIMAB. [Suspect]
     Active Substance: CASIRIVIMAB
     Indication: COVID-19
     Dosage: 5 MILLILITER
     Route: 065
     Dates: start: 20210820, end: 20210820
  3. VINBLASTINE SULFATE. [Suspect]
     Active Substance: VINBLASTINE SULFATE
     Indication: HODGKIN^S DISEASE
     Dosage: 6 MG/M2 ON DAYS 1 AND 15 OF 28 DAY CYCLE
     Route: 042
     Dates: start: 20210430
  4. DOXORUBICIN HYDROCHLORIDE. [Suspect]
     Active Substance: DOXORUBICIN HYDROCHLORIDE
     Indication: HODGKIN^S DISEASE
     Dosage: 25 MG/M2 ON DAYS 1 AND 15 OF 28 DAY CYCLE
     Route: 042
     Dates: start: 20210430
  5. NIVOLUMAB [Suspect]
     Active Substance: NIVOLUMAB
     Indication: HODGKIN^S DISEASE
     Dosage: 240 MG ON DAYS 1 AND 15 OF 28 DAY CYCLE
     Route: 042
     Dates: start: 20210430
  6. DACARBAZINE. [Suspect]
     Active Substance: DACARBAZINE
     Indication: HODGKIN^S DISEASE
     Dosage: 375 MG/M2 ON DAYS 1 AND 15 OF 28 DAY CYCLE
     Route: 042
     Dates: start: 20210430

REACTIONS (5)
  - Dehydration [Recovered/Resolved with Sequelae]
  - Nausea [Recovered/Resolved with Sequelae]
  - COVID-19 [Recovering/Resolving]
  - Vomiting [Recovered/Resolved with Sequelae]
  - Anaphylactic reaction [Recovering/Resolving]

NARRATIVE: CASE EVENT DATE: 20210811
